FAERS Safety Report 20557235 (Version 1)
Quarter: 2022Q1

REPORT INFORMATION
  Report Type: Spontaneous
  Country: NO (occurrence: NO)
  Receive Date: 20220307
  Receipt Date: 20220307
  Transmission Date: 20220423
  Serious: Yes (Other)
  Sender: FDA-Public Use
  Company Number: None

PATIENT
  Age: 32 Year
  Sex: Female
  Weight: 71 kg

DRUGS (1)
  1. NAFARELIN ACETATE [Suspect]
     Active Substance: NAFARELIN ACETATE
     Indication: In vitro fertilisation
     Dosage: 2 SPRAY DOSES IN NOSE TWICE DAILY
     Route: 045
     Dates: start: 2020

REACTIONS (2)
  - Suicidal ideation [Recovered/Resolved with Sequelae]
  - Depressed mood [Unknown]

NARRATIVE: CASE EVENT DATE: 20200101
